FAERS Safety Report 7098216-1 (Version None)
Quarter: 2010Q4

REPORT INFORMATION
  Report Type: 
  Country: None (occurrence: None)
  Receive Date: 20101105
  Receipt Date: 20100702
  Transmission Date: 20110411
  Serious: Yes (Other)
  Sender: FDA-Public Use
  Company Number: 2010JP002680

PATIENT
  Age: 2 Year
  Sex: Female
  Weight: 11 kg

DRUGS (13)
  1. FUNGUARD (MICAFUNGIN) INJECTION [Suspect]
     Indication: INFECTION PROPHYLAXIS
     Dosage: 1 MG/KG, UID/QD, IV DRIP
     Route: 041
     Dates: start: 20080708, end: 20080801
  2. CYCLOPHOSPHAMIDE [Concomitant]
  3. METHOTREXATE [Concomitant]
  4. PROGRAF [Concomitant]
  5. URSO 250 [Concomitant]
  6. POLYMYXIN B SULFATE [Concomitant]
  7. ZOVIRAX [Concomitant]
  8. VENOGLOBULIN-I [Concomitant]
  9. COTRIM [Concomitant]
  10. NWU-UP (NARTROGRASTIM) [Concomitant]
  11. ZANTAC [Concomitant]
  12. TAZOCIN (PIPERACILLIN SODIUM) [Concomitant]
  13. MAXIPIME [Concomitant]

REACTIONS (5)
  - ENGRAFTMENT SYNDROME [None]
  - FEBRILE NEUTROPENIA [None]
  - GASTRIC MUCOSAL LESION [None]
  - INFECTION [None]
  - REFRACTORINESS TO PLATELET TRANSFUSION [None]
